FAERS Safety Report 10012374 (Version 4)
Quarter: 2014Q2

REPORT INFORMATION
  Report Type: Spontaneous
  Country: JP (occurrence: JP)
  Receive Date: 20140314
  Receipt Date: 20140409
  Transmission Date: 20141212
  Serious: Yes (Other)
  Sender: FDA-Public Use
  Company Number: JP-PFIZER INC-2014075210

PATIENT
  Age: 60 Year
  Sex: Male

DRUGS (4)
  1. CELECOX [Suspect]
     Indication: RHEUMATIC DISORDER
     Dosage: 400 MG, DAILY
     Route: 048
     Dates: start: 20130621, end: 20130905
  2. METOLATE [Concomitant]
     Dosage: UNK
  3. RIMATIL [Concomitant]
     Dosage: UNK
  4. FOLIAMIN [Concomitant]
     Dosage: UNK

REACTIONS (3)
  - Retinopathy [Unknown]
  - Photosensitivity reaction [Recovered/Resolved]
  - Eczema [Recovering/Resolving]
